FAERS Safety Report 9128791 (Version 1)
Quarter: 2013Q1

REPORT INFORMATION
  Report Type: Spontaneous
  Country: GB (occurrence: GB)
  Receive Date: 20130125
  Receipt Date: 20130125
  Transmission Date: 20140127
  Serious: Yes (Death)
  Sender: FDA-Public Use
  Company Number: GB-TARO-2013P1000780

PATIENT
  Age: 4 Week
  Sex: Male
  Weight: 4 kg

DRUGS (3)
  1. CARBAMAZEPINE [Suspect]
     Route: 064
  2. CARBAMAZEPINE [Suspect]
     Route: 063
  3. CARBAMAZEPINE [Suspect]
     Route: 063
     Dates: start: 20120220, end: 20120221

REACTIONS (3)
  - Death [Fatal]
  - Foetal exposure during pregnancy [Fatal]
  - Exposure during breast feeding [Fatal]
